FAERS Safety Report 17984412 (Version 2)
Quarter: 2020Q4

REPORT INFORMATION
  Report Type: Spontaneous
  Country: NO (occurrence: NO)
  Receive Date: 20200706
  Receipt Date: 20201016
  Transmission Date: 20210113
  Serious: Yes (Hospitalization)
  Sender: FDA-Public Use
  Company Number: NO-EMD SERONO-E2B_90078469

PATIENT
  Age: 48 Year
  Sex: Female

DRUGS (2)
  1. MAVENCLAD [Suspect]
     Active Substance: CLADRIBINE
     Dosage: SECOND TREATMENT IN SUMMER 2019.
     Route: 048
     Dates: end: 2019
  2. MAVENCLAD [Suspect]
     Active Substance: CLADRIBINE
     Indication: MULTIPLE SCLEROSIS
     Dosage: FIRST TREATMENT IN 2018
     Route: 048
     Dates: start: 2018

REACTIONS (1)
  - Triple negative breast cancer [Unknown]

NARRATIVE: CASE EVENT DATE: 202004
